FAERS Safety Report 11369640 (Version 4)
Quarter: 2015Q4

REPORT INFORMATION
  Report Type: Spontaneous
  Country: US (occurrence: US)
  Receive Date: 20150812
  Receipt Date: 20151005
  Transmission Date: 20160304
  Serious: Yes (Disabling, Other)
  Sender: FDA-Public Use
  Company Number: US-JNJFOC-20150709615

PATIENT
  Age: 62 Year
  Sex: Female
  Weight: 85.73 kg

DRUGS (9)
  1. AMARYL [Concomitant]
     Active Substance: GLIMEPIRIDE
  2. FISH OIL [Concomitant]
     Active Substance: FISH OIL
  3. LEVEMIR [Concomitant]
     Active Substance: INSULIN DETEMIR
     Dosage: 35 UNITS AM AND 40 UNITS PM
  4. NORCO [Concomitant]
     Active Substance: ACETAMINOPHEN\HYDROCODONE BITARTRATE
     Dosage: 5/325
  5. INVOKANA [Suspect]
     Active Substance: CANAGLIFLOZIN
     Indication: TYPE 2 DIABETES MELLITUS
     Route: 048
     Dates: start: 20141229, end: 20150330
  6. LIPITOR [Concomitant]
     Active Substance: ATORVASTATIN CALCIUM
     Route: 048
  7. ASA [Concomitant]
     Active Substance: ASPIRIN
     Route: 048
  8. VERAPAMIL [Concomitant]
     Active Substance: VERAPAMIL HYDROCHLORIDE
     Route: 048
  9. NEXIUM [Concomitant]
     Active Substance: ESOMEPRAZOLE MAGNESIUM

REACTIONS (8)
  - Renal disorder [Recovered/Resolved]
  - Dysuria [Recovering/Resolving]
  - Blood cholesterol increased [Recovered/Resolved]
  - Back pain [Recovering/Resolving]
  - Glycosylated haemoglobin increased [Recovering/Resolving]
  - Renal function test abnormal [Recovering/Resolving]
  - Dry mouth [Recovered/Resolved]
  - Diabetes mellitus inadequate control [Recovering/Resolving]

NARRATIVE: CASE EVENT DATE: 20150201
